FAERS Safety Report 21705270 (Version 2)
Quarter: 2022Q4

REPORT INFORMATION
  Report Type: Spontaneous
  Country: US (occurrence: None)
  Receive Date: 20221209
  Receipt Date: 20221221
  Transmission Date: 20230112
  Serious: Yes (Other)
  Sender: FDA-Public Use
  Company Number: 2022A385665

PATIENT
  Age: 68 Year
  Sex: Female
  Weight: 62 kg

DRUGS (6)
  1. CALQUENCE [Suspect]
     Active Substance: ACALABRUTINIB
     Indication: Chronic lymphocytic leukaemia
     Route: 048
     Dates: start: 20211230, end: 20220104
  2. METOPROLOL [Suspect]
     Active Substance: METOPROLOL
     Indication: Atrial fibrillation
     Dosage: 25.0MG UNKNOWN
     Route: 065
     Dates: start: 20190208
  3. IMBRUVICA [Suspect]
     Active Substance: IBRUTINIB
     Route: 065
     Dates: start: 2009
  4. RITUXAN [Concomitant]
     Active Substance: RITUXIMAB
     Dates: start: 20150609, end: 20150707
  5. TREANDA [Concomitant]
     Active Substance: BENDAMUSTINE HYDROCHLORIDE
  6. ELIQUIS [Concomitant]
     Active Substance: APIXABAN

REACTIONS (8)
  - Headache [Recovered/Resolved]
  - Atrial fibrillation [Unknown]
  - Malignant neoplasm progression [Unknown]
  - Photophobia [Unknown]
  - Neck pain [Unknown]
  - Asthenia [Unknown]
  - Nausea [Unknown]
  - Decreased activity [Unknown]

NARRATIVE: CASE EVENT DATE: 20211230
